FAERS Safety Report 14458452 (Version 2)
Quarter: 2018Q1

REPORT INFORMATION
  Report Type: Spontaneous
  Country: DE (occurrence: DE)
  Receive Date: 20180130
  Receipt Date: 20180221
  Transmission Date: 20180509
  Serious: Yes (Other)
  Sender: FDA-Public Use
  Company Number: DE-TEVA-754114GER

PATIENT
  Age: 68 Year
  Sex: Male
  Weight: 90 kg

DRUGS (16)
  1. COTRIM FORTE [Concomitant]
     Active Substance: SULFAMETHOXAZOLE\TRIMETHOPRIM
     Indication: HYPERTENSION
     Dosage: 2X1 EVERY SECOND DAY
     Route: 048
     Dates: start: 20170125, end: 20170207
  2. DEXAMETHASONE. [Concomitant]
     Active Substance: DEXAMETHASONE
     Indication: PROPHYLAXIS
     Dosage: 2 MILLIGRAM DAILY;
     Route: 048
  3. DULCOLAX NOS [Concomitant]
     Active Substance: BISACODYL OR DOCUSATE SODIUM
     Dosage: 1 DOSAGE FORMS DAILY; 2 CAPSULES EVERY 2 DAYS
  4. TEMOZOLOMID [Suspect]
     Active Substance: TEMOZOLOMIDE
     Indication: GLIOBLASTOMA MULTIFORME
     Dosage: 140 MILLIGRAM DAILY;
     Route: 048
     Dates: start: 20170125, end: 20170207
  5. NOVALGIN (METAMIZOLE SODIUM) [Concomitant]
     Active Substance: METAMIZOLE SODIUM
     Dosage: 1-1-1
  6. MONO-EMBOLEX [Concomitant]
     Active Substance: CERTOPARIN SODIUM
     Indication: PROPHYLAXIS
     Dosage: 3000 IU (INTERNATIONAL UNIT) DAILY;
     Route: 058
     Dates: start: 20170116, end: 20170307
  7. TAVOR (LORAZEPAM) [Concomitant]
     Active Substance: LORAZEPAM
     Dosage: 1 MG ON DEMAND
  8. HYDROCHLOROTHIAZIDE. [Concomitant]
     Active Substance: HYDROCHLOROTHIAZIDE
     Indication: HYPERTENSION
     Dosage: 12.5 MILLIGRAM DAILY;
     Route: 048
     Dates: start: 20170116, end: 20170307
  9. CONCOR [Concomitant]
     Active Substance: BISOPROLOL FUMARATE
     Indication: HYPERTENSION
     Dosage: 2.5 MILLIGRAM DAILY;
     Route: 048
     Dates: start: 20170116, end: 20170307
  10. JANUVIA [Concomitant]
     Active Substance: SITAGLIPTIN PHOSPHATE
     Indication: TYPE 2 DIABETES MELLITUS
     Dosage: 100 MILLIGRAM DAILY;
     Route: 048
     Dates: start: 20170116, end: 20170307
  11. MELPERON [Concomitant]
     Active Substance: MELPERONE
     Indication: SLEEP DISORDER
     Route: 048
     Dates: start: 20170116, end: 20170307
  12. NOVALGIN (METAMIZOLE SODIUM) [Concomitant]
     Active Substance: METAMIZOLE SODIUM
     Indication: PROCEDURAL HEADACHE
     Dosage: 2000 MILLIGRAM DAILY;
     Route: 048
     Dates: start: 20170116, end: 20170307
  13. GRANISETRON [Concomitant]
     Active Substance: GRANISETRON
  14. PANTOZOL [Concomitant]
     Active Substance: PANTOPRAZOLE SODIUM
     Dosage: 20MG 1-0-0
  15. REKAWAN [Concomitant]
     Active Substance: POTASSIUM CHLORIDE
     Dosage: 1-0-0
  16. BIFITERAL [Concomitant]
     Active Substance: LACTULOSE
     Dosage: 1-1-1

REACTIONS (16)
  - White blood cell count decreased [Recovered/Resolved]
  - C-reactive protein abnormal [Unknown]
  - Gait inability [Unknown]
  - Procedural headache [Recovering/Resolving]
  - Drug-induced liver injury [Recovering/Resolving]
  - Blood bilirubin increased [Recovering/Resolving]
  - Agitation [Recovered/Resolved]
  - Constipation [Unknown]
  - General physical health deterioration [Unknown]
  - Jaundice [Recovering/Resolving]
  - Hemiplegia [Unknown]
  - Confusional state [Recovered/Resolved]
  - Cholelithiasis [Unknown]
  - Hepatic enzyme increased [Recovering/Resolving]
  - Platelet count decreased [Recovered/Resolved]
  - Disorientation [Unknown]

NARRATIVE: CASE EVENT DATE: 2017
